FAERS Safety Report 4724499-6 (Version None)
Quarter: 2005Q3

REPORT INFORMATION
  Report Type: 
  Country: None (occurrence: None)
  Receive Date: 20050721
  Receipt Date: 20050721
  Transmission Date: 20060218
  Serious: Yes (Other)
  Sender: FDA-Public Use
  Company Number: None

PATIENT
  Age: 3 Year
  Sex: Male
  Weight: 13.1543 kg

DRUGS (2)
  1. CHLOROL HYDRATE SYRUP 500MG/5 ML [Suspect]
     Indication: COMPUTERISED TOMOGRAM
     Dosage: 700 MG PO SEE IMAGE
     Route: 048
     Dates: start: 20050709
  2. CHLOROL HYDRATE SYRUP 500MG/5 ML [Suspect]
     Indication: CONTUSION
     Dosage: 700 MG PO SEE IMAGE
     Route: 048
     Dates: start: 20050709

REACTIONS (1)
  - MEDICATION ERROR [None]
